FAERS Safety Report 13433201 (Version 2)
Quarter: 2017Q2

REPORT INFORMATION
  Report Type: Report from Study
  Country: US (occurrence: US)
  Receive Date: 20170412
  Receipt Date: 20170417
  Transmission Date: 20170830
  Serious: Yes (Hospitalization)
  Sender: FDA-Public Use
  Company Number: US-ACTELION-A-NJ2017-152379

PATIENT
  Age: 71 Year
  Sex: Female
  Weight: 73.47 kg

DRUGS (1)
  1. UPTRAVI [Suspect]
     Active Substance: SELEXIPAG
     Indication: PULMONARY ARTERIAL HYPERTENSION
     Dosage: 600 MCG MORNING AND AFTERNOON, 400 MCG BEDTIME
     Route: 048

REACTIONS (6)
  - Ankle fracture [Unknown]
  - Fall [Unknown]
  - Nausea [Unknown]
  - Inappropriate schedule of drug administration [Unknown]
  - Ankle operation [Unknown]
  - Headache [Unknown]

NARRATIVE: CASE EVENT DATE: 20170330
